FAERS Safety Report 13587367 (Version 1)
Quarter: 2017Q2

REPORT INFORMATION
  Report Type: Spontaneous
  Country: FR (occurrence: FR)
  Receive Date: 20170526
  Receipt Date: 20170526
  Transmission Date: 20170830
  Serious: Yes (Death, Other)
  Sender: FDA-Public Use
  Company Number: FR-009507513-1705FRA011221

PATIENT
  Sex: Female

DRUGS (11)
  1. COVERSYL (PERINDOPRIL ARGININE) [Suspect]
     Active Substance: PERINDOPRIL
     Indication: HYPERTENSION
     Dosage: 5 MG (1 DF), QD
     Route: 048
     Dates: start: 201703, end: 20170424
  2. KARDEGIC [Suspect]
     Active Substance: ASPIRIN LYSINE
     Indication: PROPHYLAXIS
     Dosage: 75 MG (1 DF), QD
     Route: 048
     Dates: start: 2015, end: 20170426
  3. REFRESH EYE DROPS (POLYVINYL ALCOHOL (+) POVIDONE) [Suspect]
     Active Substance: POLYVINYL ALCOHOL\POVIDONE
     Indication: DRY EYE
     Dosage: 2 DF, QD
     Route: 047
     Dates: end: 20170424
  4. INEGY [Suspect]
     Active Substance: EZETIMIBE\SIMVASTATIN
     Indication: HYPERCHOLESTEROLAEMIA
     Dosage: 1 DF, STRENGTH 10/20 MG, QD
     Route: 048
     Dates: start: 2015, end: 20170424
  5. CACIT [Suspect]
     Active Substance: CALCIUM\VITAMIN D
     Indication: HYPOCALCAEMIA
     Dosage: 2 DF, STRENGTH (500MG/440IU), QD
     Route: 048
     Dates: end: 20170424
  6. ALDACTONE [Suspect]
     Active Substance: SPIRONOLACTONE
     Indication: HYPERTENSION
     Dosage: 20 MG (1 DF), QD
     Route: 048
     Dates: start: 20170328, end: 20170424
  7. MOPRAL (OMEPRAZOLE) [Suspect]
     Active Substance: OMEPRAZOLE SODIUM
     Indication: GASTROOESOPHAGEAL REFLUX DISEASE
     Dosage: 20 MG (1 DF), QD
     Route: 048
     Dates: start: 2015, end: 20170424
  8. TARDYFERON [Concomitant]
     Active Substance: FERROUS SULFATE
  9. SPECIAFOLDINE [Concomitant]
     Active Substance: FOLIC ACID
  10. CHOLECALCIFEROL [Concomitant]
     Active Substance: CHOLECALCIFEROL
  11. OXYBUTYNIN [Suspect]
     Active Substance: OXYBUTYNIN
     Indication: INCONTINENCE
     Dosage: 2 DF, QD
     Route: 048
     Dates: start: 201602, end: 20170424

REACTIONS (8)
  - Escherichia test positive [None]
  - Renal failure [None]
  - Fall [Fatal]
  - Hyponatraemia [Fatal]
  - Haematoma [Fatal]
  - Head injury [None]
  - Wound [None]
  - Altered state of consciousness [Fatal]
